FAERS Safety Report 7138378-0 (Version None)
Quarter: 2010Q4

REPORT INFORMATION
  Report Type: 
  Country: None (occurrence: None)
  Receive Date: 20101206
  Receipt Date: 20070806
  Transmission Date: 20110411
  Serious: Yes (Hospitalization)
  Sender: FDA-Public Use
  Company Number: NL-ROCHE-745708

PATIENT

DRUGS (1)
  1. XELODA [Suspect]
     Route: 048

REACTIONS (1)
  - DISEASE PROGRESSION [None]
